FAERS Safety Report 11734197 (Version 1)
Quarter: 2015Q4

REPORT INFORMATION
  Report Type: Spontaneous
  Country: US (occurrence: None)
  Receive Date: 20151112
  Receipt Date: 20151112
  Transmission Date: 20160304
  Serious: Yes (Other)
  Sender: FDA-Public Use
  Company Number: None

PATIENT
  Sex: Female

DRUGS (1)
  1. LUMIGAN 0.01 ALLERGAN [Suspect]
     Active Substance: BIMATOPROST
     Dosage: 1 DROP BOTH EYES, QHS/BEDTIME

REACTIONS (1)
  - Drug ineffective [None]
